FAERS Safety Report 9620110 (Version 2)
Quarter: 2013Q4

REPORT INFORMATION
  Report Type: Spontaneous
  Country: US (occurrence: US)
  Receive Date: 20131014
  Receipt Date: 20131030
  Transmission Date: 20140711
  Serious: Yes (Other)
  Sender: FDA-Public Use
  Company Number: US-GLAXOSMITHKLINE-A1045102A

PATIENT
  Age: 44 Year
  Sex: Female
  Weight: 52.1 kg

DRUGS (10)
  1. TAGAMET [Suspect]
     Indication: ABDOMINAL PAIN UPPER
     Dates: start: 201309, end: 201309
  2. CELEXA [Suspect]
     Indication: ANXIETY
     Dosage: 40MG PER DAY
     Route: 048
     Dates: start: 2011, end: 20130923
  3. BIRTH CONTROL [Concomitant]
  4. ALESSE [Concomitant]
  5. ACETAMINOPHEN [Concomitant]
  6. BENTYL [Concomitant]
  7. SOMA [Concomitant]
  8. VICODIN [Concomitant]
  9. FERROUS GLUCONATE [Concomitant]
  10. PRENATAL VITAMIN [Concomitant]

REACTIONS (9)
  - Suicidal ideation [Recovered/Resolved]
  - Serotonin syndrome [Recovered/Resolved]
  - Swelling [Recovered/Resolved]
  - Weight increased [Recovered/Resolved]
  - Heart rate increased [Recovered/Resolved]
  - Hyperhidrosis [Recovered/Resolved]
  - Depression [Recovered/Resolved]
  - Crying [Recovered/Resolved]
  - Emotional disorder [Recovered/Resolved]
